FAERS Safety Report 8649566 (Version 2)
Quarter: 2013Q2

REPORT INFORMATION
  Report Type: Spontaneous
  Country: IT (occurrence: IT)
  Receive Date: 20120705
  Receipt Date: 20130509
  Transmission Date: 20140414
  Serious: Yes (Other)
  Sender: FDA-Public Use
  Company Number: IT-SANOFI-AVENTIS-2012SA046774

PATIENT
  Age: 54 Year
  Sex: Female

DRUGS (4)
  1. ARAVA [Suspect]
     Indication: PSORIATIC ARTHROPATHY
     Route: 048
     Dates: start: 20050101, end: 20120410
  2. HUMIRA [Concomitant]
  3. VITAMIN D3 [Concomitant]
  4. HYDROCHLOROTHIAZIDE/LISINOPRIL [Concomitant]

REACTIONS (1)
  - Oral lichen planus [Recovered/Resolved with Sequelae]
